FAERS Safety Report 13362016 (Version 1)
Quarter: 2017Q1

REPORT INFORMATION
  Report Type: Spontaneous
  Country: US (occurrence: US)
  Receive Date: 20170321
  Receipt Date: 20170321
  Transmission Date: 20170429
  Serious: No
  Sender: FDA-Public Use
  Company Number: None

PATIENT
  Age: 63 Year
  Sex: Male

DRUGS (1)
  1. STIVARGA [Suspect]
     Active Substance: REGORAFENIB
     Indication: OSTEOARTHRITIS
     Dosage: 80MG(2 TABLETS OF 40MG)
     Route: 048
     Dates: start: 20170203, end: 20170314

REACTIONS (3)
  - Arthralgia [None]
  - Myalgia [None]
  - Therapy cessation [None]

NARRATIVE: CASE EVENT DATE: 20170314
